FAERS Safety Report 6111981-2 (Version None)
Quarter: 2009Q1

REPORT INFORMATION
  Report Type: 
  Country: None (occurrence: None)
  Receive Date: 20090310
  Receipt Date: 20090302
  Transmission Date: 20090719
  Serious: Yes (Other)
  Sender: FDA-Public Use
  Company Number: 2009S1002387

PATIENT
  Age: 65 Year
  Sex: Male

DRUGS (8)
  1. CIPROFLOXACIN HCL [Suspect]
     Indication: LOWER RESPIRATORY TRACT INFECTION
     Dosage: 250 MG;
  2. ASPIRIN [Concomitant]
  3. CETIRIZINE [Concomitant]
  4. EZETIMIBE [Concomitant]
  5. IRBESARTAN [Concomitant]
  6. OXPRENOLOL [Concomitant]
  7. SIMVASTATIN [Concomitant]
  8. TIOTROPIUM BROMIDE [Concomitant]

REACTIONS (4)
  - BLISTER [None]
  - PSEUDOPORPHYRIA [None]
  - SKIN FRAGILITY [None]
  - ULCER [None]
